FAERS Safety Report 24114611 (Version 1)
Quarter: 2024Q3

REPORT INFORMATION
  Report Type: Spontaneous
  Country: US (occurrence: US)
  Receive Date: 20240720
  Receipt Date: 20240720
  Transmission Date: 20241016
  Serious: No
  Sender: MERCK
  Company Number: US-009507513-2407USA002782

PATIENT
  Sex: Male

DRUGS (1)
  1. JANUMET [Suspect]
     Active Substance: METFORMIN HYDROCHLORIDE\SITAGLIPTIN PHOSPHATE
     Indication: Diabetes mellitus
     Dosage: 1 TABLET BID, SOMETIMES THREE TIMES DAILY, STRENGTH 50/500 UNITS NOT PROVIDED,
     Route: 048

REACTIONS (2)
  - Blood glucose increased [Unknown]
  - Intentional overdose [Unknown]
